FAERS Safety Report 4854088-4 (Version None)
Quarter: 2005Q4

REPORT INFORMATION
  Report Type: 
  Country: None (occurrence: None)
  Receive Date: 20051125
  Receipt Date: 20050606
  Transmission Date: 20060501
  Serious: Yes (Other)
  Sender: FDA-Public Use
  Company Number: US-JNJFOC-20050504667

PATIENT

DRUGS (2)
  1. LEVAQUIN [Suspect]
     Indication: RESPIRATORY TRACT INFECTION
     Dosage: 750 MG, 1 IN 1 DAY, ORAL
     Route: 048
     Dates: start: 20050501, end: 20050501
  2. PREDNISONE [Concomitant]

REACTIONS (3)
  - CONTUSION [None]
  - TENDON DISORDER [None]
  - TENDON RUPTURE [None]
